FAERS Safety Report 4395759-6 (Version None)
Quarter: 2004Q3

REPORT INFORMATION
  Report Type: 
  Country: None (occurrence: None)
  Receive Date: 20040713
  Receipt Date: 20040705
  Transmission Date: 20050211
  Serious: Yes (Hospitalization)
  Sender: FDA-Public Use
  Company Number: AU-AMGEN-US082347

PATIENT
  Sex: Male

DRUGS (7)
  1. NEULASTA [Suspect]
     Indication: CHEMOTHERAPY
  2. CYCLOPHOSPHAMIDE [Suspect]
  3. ADRIAMYCIN PFS [Suspect]
  4. VINCRISTINE SULFATE [Suspect]
  5. PREDNISOLONE [Suspect]
  6. ENOXAPARIN SODIUM [Concomitant]
  7. FILGRASTIM [Concomitant]

REACTIONS (2)
  - HYPOXIA [None]
  - PNEUMONITIS [None]
